FAERS Safety Report 22229423 (Version 2)
Quarter: 2023Q2

REPORT INFORMATION
  Report Type: Report from Study
  Country: UY (occurrence: UY)
  Receive Date: 20230419
  Receipt Date: 20230507
  Transmission Date: 20230722
  Serious: Yes (Other)
  Sender: FDA-Public Use
  Company Number: UY-JNJFOC-20230438962

PATIENT
  Age: 48 Year
  Sex: Female
  Weight: 62 kg

DRUGS (1)
  1. REMICADE [Suspect]
     Active Substance: INFLIXIMAB
     Indication: Crohn^s disease
     Route: 041
     Dates: start: 20221101

REACTIONS (4)
  - Rheumatoid arthritis [Recovering/Resolving]
  - Systemic lupus erythematosus [Recovering/Resolving]
  - Drug ineffective [Recovering/Resolving]
  - Off label use [Unknown]
